FAERS Safety Report 7807883-3 (Version None)
Quarter: 2011Q4

REPORT INFORMATION
  Report Type: 
  Country: None (occurrence: None)
  Receive Date: 20111011
  Receipt Date: 20111006
  Transmission Date: 20120403
  Serious: Yes (Death)
  Sender: FDA-Public Use
  Company Number: JP-ASTRAZENECA-2011SE52739

PATIENT
  Age: 77 Year
  Sex: Male

DRUGS (3)
  1. MEROPENEM [Suspect]
     Indication: SEPSIS
     Route: 042
     Dates: start: 20110709, end: 20110713
  2. MIDOCIN [Concomitant]
     Indication: SEPSIS
     Dates: start: 20110709, end: 20110725
  3. MEROPENEM [Suspect]
     Route: 042
     Dates: start: 20110803, end: 20110822

REACTIONS (1)
  - STEVENS-JOHNSON SYNDROME [None]
